FAERS Safety Report 18417364 (Version 1)
Quarter: 2020Q4

REPORT INFORMATION
  Report Type: Spontaneous
  Country: US (occurrence: US)
  Receive Date: 20201022
  Receipt Date: 20201022
  Transmission Date: 20210114
  Serious: No
  Sender: FDA-Public Use
  Company Number: US-SEATTLE GENETICS-2020SGN03712

PATIENT
  Sex: Female

DRUGS (2)
  1. BLACK SEED                         /02602202/ [Concomitant]
  2. TUKYSA [Suspect]
     Active Substance: TUCATINIB
     Indication: BREAST CANCER FEMALE
     Dosage: 150 MG
     Route: 065

REACTIONS (1)
  - Epistaxis [Recovered/Resolved]
